FAERS Safety Report 4591308-8 (Version None)
Quarter: 2005Q1

REPORT INFORMATION
  Report Type: 
  Country: None (occurrence: None)
  Receive Date: 20050225
  Receipt Date: 20050126
  Transmission Date: 20050727
  Serious: Yes (Hospitalization)
  Sender: FDA-Public Use
  Company Number: JP-ROCHE-393923

PATIENT
  Age: 53 Year
  Sex: Male

DRUGS (4)
  1. CELLCEPT [Suspect]
     Route: 048
     Dates: start: 20031115
  2. PROGRAF [Suspect]
     Route: 065
     Dates: start: 20031115
  3. SIMULECT [Suspect]
     Route: 065
     Dates: start: 20031115
  4. METHYLPREDNISOLONE [Suspect]
     Route: 048
     Dates: start: 20031115

REACTIONS (7)
  - C-REACTIVE PROTEIN INCREASED [None]
  - EPIDIDYMITIS [None]
  - LYMPHORRHOEA [None]
  - PELVIC ABSCESS [None]
  - PYREXIA [None]
  - STAPHYLOCOCCAL INFECTION [None]
  - WHITE BLOOD CELL COUNT INCREASED [None]
